FAERS Safety Report 23347273 (Version 1)
Quarter: 2023Q4

REPORT INFORMATION
  Report Type: Spontaneous
  Country: ES (occurrence: ES)
  Receive Date: 20231228
  Receipt Date: 20231228
  Transmission Date: 20240110
  Serious: Yes (Other)
  Sender: FDA-Public Use
  Company Number: None

PATIENT
  Age: 41 Year
  Sex: Male
  Weight: 75 kg

DRUGS (5)
  1. ADCETRIS [Suspect]
     Active Substance: BRENTUXIMAB VEDOTIN
     Indication: Cutaneous T-cell lymphoma
     Dosage: 135 MILLIGRAM
     Route: 042
     Dates: start: 20231102, end: 20231123
  2. ACYCLOVIR [Concomitant]
     Active Substance: ACYCLOVIR
     Dosage: 800 MILLIGRAM
     Route: 065
  3. Alzil [Concomitant]
     Dosage: 20 MILLIGRAM
     Route: 065
  4. LEVOTHYROXINE SODIUM [Concomitant]
     Active Substance: LEVOTHYROXINE SODIUM
     Dosage: 100 MICROGRAM
     Route: 065
  5. FENOFIBRATE [Concomitant]
     Active Substance: FENOFIBRATE
     Dosage: 145 MILLIGRAM
     Route: 065

REACTIONS (6)
  - Chest discomfort [Recovered/Resolved]
  - Skin lesion [Recovered/Resolved]
  - Pruritus [Recovered/Resolved]
  - Syncope [Recovered/Resolved]
  - Tachycardia [Recovered/Resolved]
  - Dizziness [Recovered/Resolved]

NARRATIVE: CASE EVENT DATE: 20231123
